FAERS Safety Report 23533406 (Version 1)
Quarter: 2024Q1

REPORT INFORMATION
  Report Type: Spontaneous
  Country: FR (occurrence: FR)
  Receive Date: 20240216
  Receipt Date: 20240216
  Transmission Date: 20240410
  Serious: Yes (Death)
  Sender: FDA-Public Use
  Company Number: None

PATIENT
  Age: 65 Year
  Sex: Male
  Weight: 116 kg

DRUGS (2)
  1. IOVERSOL [Suspect]
     Active Substance: IOVERSOL
     Indication: Computerised tomogram abdomen
     Dosage: (STRENGTH: 300 MG I/ML)
     Route: 042
     Dates: start: 20240112, end: 20240112
  2. IOVERSOL [Suspect]
     Active Substance: IOVERSOL
     Indication: Computerised tomogram thorax

REACTIONS (2)
  - Anaphylactic reaction [Fatal]
  - Troponin increased [Fatal]

NARRATIVE: CASE EVENT DATE: 20240112
